FAERS Safety Report 4543063-5 (Version None)
Quarter: 2004Q4

REPORT INFORMATION
  Report Type: 
  Country: None (occurrence: None)
  Receive Date: 20041229
  Receipt Date: 20041220
  Transmission Date: 20050328
  Serious: Yes (Hospitalization)
  Sender: FDA-Public Use
  Company Number: 2004-DE-06292GD

PATIENT
  Age: 46 Year
  Sex: Male

DRUGS (2)
  1. MEXILETINE HCL [Suspect]
     Indication: DIABETIC NEUROPATHY
     Dosage: 300 MG PO
     Route: 048
  2. GLICLAZIDE (GLICLAZIDE) [Concomitant]

REACTIONS (13)
  - ALANINE AMINOTRANSFERASE INCREASED [None]
  - BLOOD AMYLASE INCREASED [None]
  - BLOOD UREA INCREASED [None]
  - BODY TEMPERATURE INCREASED [None]
  - DIABETES MELLITUS INSULIN-DEPENDENT [None]
  - DRUG HYPERSENSITIVITY [None]
  - EOSINOPHILIA [None]
  - HEART RATE INCREASED [None]
  - HEPATIC FUNCTION ABNORMAL [None]
  - HUMAN HERPES VIRUS 6 SEROLOGY POSITIVE [None]
  - LEUKOCYTOSIS [None]
  - LYMPHADENOPATHY [None]
  - PANCREATIC DISORDER [None]
